FAERS Safety Report 10372177 (Version 1)
Quarter: 2014Q3

REPORT INFORMATION
  Report Type: Spontaneous
  Country: US (occurrence: US)
  Receive Date: 20140808
  Receipt Date: 20140808
  Transmission Date: 20150326
  Serious: No
  Sender: FDA-Public Use
  Company Number: US-BRISTOL-MYERS SQUIBB COMPANY-20675013

PATIENT
  Age: 63 Year
  Sex: Female

DRUGS (1)
  1. SPRYCEL [Suspect]
     Active Substance: DASATINIB
     Indication: SYSTEMIC MASTOCYTOSIS
     Dosage: LAST DATE IN 2014
     Route: 048
     Dates: start: 201305

REACTIONS (7)
  - Stomatitis [Unknown]
  - Hot flush [Unknown]
  - Off label use [Unknown]
  - Headache [Unknown]
  - Hyperhidrosis [Unknown]
  - Skin disorder [Unknown]
  - Nausea [Unknown]

NARRATIVE: CASE EVENT DATE: 2013
